FAERS Safety Report 7942012-7 (Version None)
Quarter: 2011Q4

REPORT INFORMATION
  Report Type: 
  Country: None (occurrence: None)
  Receive Date: 20111128
  Receipt Date: 20111114
  Transmission Date: 20120403
  Serious: Yes (Other)
  Sender: FDA-Public Use
  Company Number: US-ELI_LILLY_AND_COMPANY-US201103001719

PATIENT
  Sex: Male
  Weight: 70 kg

DRUGS (23)
  1. VITAMIN D [Concomitant]
     Dosage: UNK
  2. LISINOPRIL [Concomitant]
     Dosage: 40 MG, QD
     Route: 048
  3. ZOLOFT [Concomitant]
     Dosage: 50 MG, QD
     Route: 048
  4. HYDROMORPHONE HCL [Concomitant]
     Dosage: UNK, PRN
  5. ASPIRIN [Concomitant]
     Dosage: 1 DF, QD
     Route: 048
  6. GLYBURIDE [Concomitant]
     Dosage: 1 MG, QD
  7. PROSCAR [Concomitant]
     Dosage: 1 DF, QD
     Route: 048
  8. FORTEO [Suspect]
     Dosage: 20 UG, QD
     Route: 058
  9. BYSTOLIC [Concomitant]
     Dosage: 10 MG, QD
     Route: 048
  10. CALCIUM +VIT D [Concomitant]
     Dosage: 1 DF, QD
  11. OXYCODONE HCL [Concomitant]
     Dosage: 1 DF, EVERY 4 HRS
     Route: 048
  12. MAGNESIUM OXIDE [Concomitant]
     Dosage: 400 MG, BID
  13. FORTEO [Suspect]
     Dosage: 20 UG, QD
     Route: 058
  14. METFORMIN HCL [Concomitant]
     Dosage: 1000 MG, QD
     Route: 048
  15. DOCUSATE SODIUM [Concomitant]
     Dosage: 10 MG, PRN
  16. RANITIDINE HCL [Concomitant]
     Dosage: UNK
     Route: 048
  17. AMLODIPINE BESYLATE [Concomitant]
     Dosage: 5 MG, BID
     Route: 048
  18. LASIX [Concomitant]
     Dosage: 1 DF, QOD
     Route: 048
  19. FORTEO [Suspect]
     Indication: OSTEOPOROSIS
     Dosage: 20 UG, DAILY (1/D)
     Route: 058
     Dates: start: 20101228
  20. PROPRANOLOL HYDROCHLORIDE [Concomitant]
     Dosage: 10 MG, TID
     Route: 048
  21. CLARITIN [Concomitant]
     Dosage: 10 MG, PRN
     Route: 048
  22. FINASTERIDE [Concomitant]
     Dosage: UNK, QD
  23. IRON [Concomitant]

REACTIONS (3)
  - ARTHRALGIA [None]
  - MULTIPLE MYELOMA [None]
  - SLEEP DISORDER DUE TO A GENERAL MEDICAL CONDITION [None]
